FAERS Safety Report 18117636 (Version 3)
Quarter: 2021Q2

REPORT INFORMATION
  Report Type: Spontaneous
  Country: JP (occurrence: JP)
  Receive Date: 20200806
  Receipt Date: 20210408
  Transmission Date: 20210717
  Serious: Yes (Other)
  Sender: FDA-Public Use
  Company Number: NVSJ2020JP007304

PATIENT
  Age: 74 Year
  Sex: Female

DRUGS (1)
  1. BEOVU [Suspect]
     Active Substance: BROLUCIZUMAB-DBLL
     Indication: AGE-RELATED MACULAR DEGENERATION
     Dosage: 6 MG
     Route: 031
     Dates: start: 20200601, end: 20200601

REACTIONS (8)
  - Vitreous floaters [Unknown]
  - Retinal vasculitis [Recovered/Resolved]
  - Iris adhesions [Recovering/Resolving]
  - Vitreous opacities [Recovering/Resolving]
  - Optic neuritis [Recovering/Resolving]
  - Blindness transient [Unknown]
  - Iritis [Recovering/Resolving]
  - Uveitis [Recovered/Resolved]

NARRATIVE: CASE EVENT DATE: 20200708
